FAERS Safety Report 14721331 (Version 4)
Quarter: 2019Q2

REPORT INFORMATION
  Report Type: Spontaneous
  Country: BG (occurrence: BG)
  Receive Date: 20180405
  Receipt Date: 20190613
  Transmission Date: 20190711
  Serious: Yes (Other)
  Sender: FDA-Public Use
  Company Number: BG-TOLMAR, INC.-2018BG003578

PATIENT

DRUGS (10)
  1. BICALUTAMIDE. [Suspect]
     Active Substance: BICALUTAMIDE
     Indication: PROSTATE CANCER
     Dosage: 50 MG, DAILY
     Route: 065
     Dates: start: 20141029
  2. ABIRATERONE. [Suspect]
     Active Substance: ABIRATERONE ACETATE
     Indication: PROSTATE CANCER
     Dosage: 1000 MG, DAILY
     Route: 048
     Dates: start: 201705
  3. LUTETIUM (177LU) OXODOTREOTIDE [Suspect]
     Active Substance: LUTETIUM OXODOTREOTIDE LU-177
     Indication: PROSTATE CANCER
     Dosage: UNK, 4 APPLICATIONS
     Route: 065
  4. ENZALUTAMIDE [Suspect]
     Active Substance: ENZALUTAMIDE
     Indication: PROSTATE CANCER
     Dosage: 160 MG, DAILY (AFTER INEFFECTIVE TREATMENT NEWGENERATION IS INCLUDED ANTIANDROGEN
     Route: 065
  5. RADIUM RA 223 DICHLORIDE [Suspect]
     Active Substance: RADIUM RA-223 DICHLORIDE
     Indication: PROSTATE CANCER
     Dosage: UNK , UNK
     Route: 042
  6. RADIUM RA 223 DICHLORIDE [Suspect]
     Active Substance: RADIUM RA-223 DICHLORIDE
     Dosage: 4.4 MBQ, UNK
     Route: 042
     Dates: start: 20170418, end: 20170712
  7. DOCETAXEL. [Suspect]
     Active Substance: DOCETAXEL
     Indication: PROSTATE CANCER
     Dosage: UNK, 5 COURSES
     Route: 065
  8. XGEVA [Suspect]
     Active Substance: DENOSUMAB
     Indication: PROSTATE CANCER
     Dosage: UNK
     Route: 065
     Dates: start: 20141029
  9. CABAZITAXEL SANOFI [Suspect]
     Active Substance: CABAZITAXEL
     Indication: PROSTATE CANCER
     Dosage: UNK, 12 COURSES
     Route: 065
     Dates: start: 20160519, end: 20170126
  10. ELIGARD [Suspect]
     Active Substance: LEUPROLIDE ACETATE
     Indication: PROSTATE CANCER
     Dosage: UNK
     Route: 065
     Dates: start: 20141029

REACTIONS (5)
  - Fatigue [Unknown]
  - Malignant neoplasm progression [Unknown]
  - Drug resistance [Unknown]
  - Prostatic specific antigen increased [Unknown]
  - Drug ineffective [Unknown]

NARRATIVE: CASE EVENT DATE: 201706
